FAERS Safety Report 17891881 (Version 1)
Quarter: 2020Q2

REPORT INFORMATION
  Report Type: Spontaneous
  Country: FR (occurrence: FR)
  Receive Date: 20200612
  Receipt Date: 20200612
  Transmission Date: 20200714
  Serious: Yes (Congenital Anomaly, Other)
  Sender: FDA-Public Use
  Company Number: FR-GLAXOSMITHKLINE-FR2020094875

PATIENT
  Sex: Male
  Weight: 3.5 kg

DRUGS (1)
  1. LAMICTAL [Suspect]
     Active Substance: LAMOTRIGINE
     Indication: EPILEPSY
     Dosage: 25MG - 0 - 75MG
     Route: 064
     Dates: start: 20190814, end: 20200416

REACTIONS (3)
  - Atrial septal defect [Recovered/Resolved with Sequelae]
  - Coarctation of the aorta [Recovered/Resolved with Sequelae]
  - Ventricular septal defect [Recovered/Resolved with Sequelae]

NARRATIVE: CASE EVENT DATE: 20200216
